FAERS Safety Report 7561082-1 (Version None)
Quarter: 2011Q2

REPORT INFORMATION
  Report Type: 
  Country: None (occurrence: None)
  Receive Date: 20110621
  Receipt Date: 20110616
  Transmission Date: 20111010
  Serious: Yes (Other)
  Sender: FDA-Public Use
  Company Number: US-UCBSA-035520

PATIENT
  Sex: Female
  Weight: 61.3 kg

DRUGS (2)
  1. MERCAPTOPURINE [Concomitant]
     Indication: CROHN'S DISEASE
     Route: 048
     Dates: start: 20110416
  2. CIMZIA [Suspect]
     Indication: CROHN'S DISEASE
     Route: 058
     Dates: start: 20100901

REACTIONS (3)
  - FEMALE GENITAL TRACT FISTULA [None]
  - UNDERDOSE [None]
  - RECTOVAGINAL SEPTUM ABSCESS [None]
